FAERS Safety Report 5162317-5 (Version None)
Quarter: 2006Q4

REPORT INFORMATION
  Report Type: 
  Country: None (occurrence: None)
  Receive Date: 20061130
  Receipt Date: 20061120
  Transmission Date: 20070319
  Serious: Yes (Hospitalization)
  Sender: FDA-Public Use
  Company Number: GB-ABBOTT-06P-167-0351028-00

PATIENT
  Age: 66 Year
  Sex: Male
  Weight: 170 kg

DRUGS (8)
  1. SIBUTRAMINE [Suspect]
     Indication: OBESITY
     Route: 048
     Dates: start: 20060802, end: 20061013
  2. ASPIRIN [Concomitant]
     Indication: DIABETES MELLITUS
     Route: 048
     Dates: start: 20000101
  3. BOSPROLOL [Concomitant]
     Indication: BLOOD PRESSURE
     Route: 048
     Dates: start: 20030618
  4. FUROSEMIDE [Concomitant]
     Indication: BLOOD PRESSURE
     Dates: start: 20040713
  5. INSULIN GLARGINE [Concomitant]
     Indication: DIABETES MELLITUS
     Dates: start: 20031203
  6. LISINOPRIL [Concomitant]
     Indication: BLOOD PRESSURE
     Route: 048
     Dates: start: 20030514
  7. METFORMIN [Concomitant]
     Indication: DIABETES MELLITUS
     Dates: start: 19940628
  8. SIMVASTATIN [Concomitant]
     Indication: DRUG USE FOR UNKNOWN INDICATION
     Dates: start: 20040108

REACTIONS (1)
  - ACUTE MYELOID LEUKAEMIA [None]
